FAERS Safety Report 4302412-3 (Version None)
Quarter: 2004Q1

REPORT INFORMATION
  Report Type: 
  Country: None (occurrence: None)
  Receive Date: 20040220
  Receipt Date: 20040204
  Transmission Date: 20041129
  Serious: Yes (Death)
  Sender: FDA-Public Use
  Company Number: 2004-DE-00551GD

PATIENT
  Age: 3 Year
  Sex: Female

DRUGS (4)
  1. NEVIRAPINE (NEVIRAPINE) (NR) [Suspect]
     Indication: ACQUIRED IMMUNODEFICIENCY SYNDROME
     Dosage: NR (NR), NR
  2. STAVUDINE (STAVUDINE) (NR) [Suspect]
     Indication: ACQUIRED IMMUNODEFICIENCY SYNDROME
     Dosage: NR (NR), NR
  3. RITONAVIR (RITONAVIR) (NR) [Suspect]
     Indication: AIDS RELATED COMPLICATION
     Dosage: NOT REPORTED
  4. RITONAVIR (RITONAVIR) (NR) [Suspect]
     Indication: RESPIRATORY DISORDER
     Dosage: NOT REPORTED

REACTIONS (13)
  - AIDS RELATED COMPLICATION [None]
  - COLITIS [None]
  - FAECAL OCCULT BLOOD POSITIVE [None]
  - GASTROINTESTINAL HAEMORRHAGE [None]
  - GASTROINTESTINAL MUCOSAL DISORDER [None]
  - HAEMATEMESIS [None]
  - HYPERAEMIA [None]
  - MALNUTRITION [None]
  - ODYNOPHAGIA [None]
  - OESOPHAGEAL ULCER [None]
  - ORAL CANDIDIASIS [None]
  - PSEUDOPOLYP [None]
  - RESPIRATORY DISORDER [None]
